FAERS Safety Report 4507528-4 (Version None)
Quarter: 2004Q4

REPORT INFORMATION
  Report Type: 
  Country: None (occurrence: None)
  Receive Date: 20041118
  Receipt Date: 20041108
  Transmission Date: 20050328
  Serious: Yes (Hospitalization)
  Sender: FDA-Public Use
  Company Number: 2004090059

PATIENT
  Age: 76 Year
  Sex: Female

DRUGS (12)
  1. AMLODIPINE [Suspect]
     Indication: ILL-DEFINED DISORDER
     Dosage: (1 IN 1 D), ORAL
     Route: 048
     Dates: end: 20040312
  2. HYZAAR [Suspect]
     Indication: ILL-DEFINED DISORDER
     Dosage: 2 DF (1 IN 1 D), ORAL
     Route: 048
     Dates: end: 20040312
  3. MONONIDINE      (MOXONIDINE) [Suspect]
     Indication: ILL-DEFINED DISORDER
     Dosage: (1 IN 1 D), ORAL
     Route: 048
     Dates: end: 20040311
  4. GABAPENTIN [Concomitant]
  5. SIMVASTATIN [Concomitant]
  6. CLONAZEPAM [Concomitant]
  7. PANCREAS POWDER [Concomitant]
  8. PANTOPRAZOLE [Concomitant]
  9. LERCANIDIPINE [Concomitant]
  10. VALSARTAN [Concomitant]
  11. ROXITHROMYCIN [Concomitant]
  12. INSULIN [Concomitant]

REACTIONS (6)
  - BLOOD CHLORIDE DECREASED [None]
  - BLOOD CREATININE INCREASED [None]
  - BRONCHIAL INFECTION [None]
  - HYPONATRAEMIA [None]
  - HYPOTENSION [None]
  - SUPERINFECTION [None]
